FAERS Safety Report 21990447 (Version 1)
Quarter: 2023Q1

REPORT INFORMATION
  Report Type: Spontaneous
  Country: US (occurrence: None)
  Receive Date: 20230213
  Receipt Date: 20230213
  Transmission Date: 20230418
  Serious: No
  Sender: FDA-Public Use
  Company Number: None

PATIENT
  Sex: Male

DRUGS (1)
  1. ENBREL [Suspect]
     Active Substance: ETANERCEPT
     Indication: Rheumatoid arthritis
     Dosage: OTHER FREQUENCY : Q 7 DAYS;?
     Route: 058
     Dates: start: 20220929

REACTIONS (3)
  - Therapeutic product effect decreased [None]
  - Arthropathy [None]
  - Arthropathy [None]
